FAERS Safety Report 22065665 (Version 3)
Quarter: 2023Q2

REPORT INFORMATION
  Report Type: Spontaneous
  Country: IT (occurrence: IT)
  Receive Date: 20230306
  Receipt Date: 20230505
  Transmission Date: 20230721
  Serious: Yes (Other)
  Sender: FDA-Public Use
  Company Number: IT-OTSUKA-2023_005246

PATIENT
  Age: 66 Year
  Sex: Male

DRUGS (1)
  1. ABILIFY [Suspect]
     Active Substance: ARIPIPRAZOLE
     Indication: Obsessive-compulsive disorder
     Dosage: 20 MG
     Route: 065
     Dates: start: 2011

REACTIONS (8)
  - Hepatic cirrhosis [Not Recovered/Not Resolved]
  - Loss of consciousness [Recovered/Resolved]
  - Diabetes mellitus [Unknown]
  - Gliosis [Not Recovered/Not Resolved]
  - Hypoaesthesia [Unknown]
  - Obesity [Unknown]
  - Weight increased [Unknown]
  - Drug ineffective for unapproved indication [Unknown]

NARRATIVE: CASE EVENT DATE: 20140101
